FAERS Safety Report 23592641 (Version 2)
Quarter: 2024Q1

REPORT INFORMATION
  Report Type: Spontaneous
  Country: US (occurrence: US)
  Receive Date: 20240304
  Receipt Date: 20240312
  Transmission Date: 20240410
  Serious: No
  Sender: FDA-Public Use
  Company Number: US-PFIZER INC-202400054622

PATIENT
  Age: 70 Year
  Sex: Male
  Weight: 122.47 kg

DRUGS (3)
  1. METHOTREXATE SODIUM [Suspect]
     Active Substance: METHOTREXATE SODIUM
     Dosage: TAKES 6 ONCE A WEEK
  2. PREDNISONE [Concomitant]
     Active Substance: PREDNISONE
     Dosage: TAKING 1 A DAY FOR A WEEK
  3. PREDNISONE [Concomitant]
     Active Substance: PREDNISONE
     Dosage: HALF A PILL A DAY FOR A WEEK

REACTIONS (1)
  - Drug ineffective [Unknown]
